FAERS Safety Report 7329361-0 (Version None)
Quarter: 2011Q1

REPORT INFORMATION
  Report Type: 
  Country: None (occurrence: None)
  Receive Date: 20110201
  Receipt Date: 20101220
  Transmission Date: 20110831
  Serious: No
  Sender: FDA-Public Use
  Company Number: 260671USA

PATIENT

DRUGS (1)
  1. LANSOPRAZOLE [Suspect]
     Dosage: 15 MG, ORAL
     Route: 048

REACTIONS (1)
  - COUGH [None]
